FAERS Safety Report 9931188 (Version 1)
Quarter: 2014Q1

REPORT INFORMATION
  Report Type: Spontaneous
  Country: US (occurrence: US)
  Receive Date: 20140228
  Receipt Date: 20140228
  Transmission Date: 20141002
  Serious: Yes (Other)
  Sender: FDA-Public Use
  Company Number: US-ROCHE-1352797

PATIENT
  Age: 80 Year
  Sex: Male

DRUGS (2)
  1. PEGASYS [Suspect]
     Indication: MALIGNANT MELANOMA
     Dosage: HIGH DOSE WEEKLY X 8
     Route: 058
  2. PEGASYS [Suspect]
     Dosage: LOW DOSE WEEKLY X 13
     Route: 058

REACTIONS (5)
  - Pancytopenia [Not Recovered/Not Resolved]
  - Platelet count decreased [Not Recovered/Not Resolved]
  - Haemoglobin decreased [Not Recovered/Not Resolved]
  - Wrong drug administered [Unknown]
  - Drug ineffective [Unknown]
